FAERS Safety Report 7748765-5 (Version None)
Quarter: 2011Q3

REPORT INFORMATION
  Report Type: 
  Country: None (occurrence: None)
  Receive Date: 20110913
  Receipt Date: 20110913
  Transmission Date: 20111222
  Serious: No
  Sender: FDA-Public Use
  Company Number: None

PATIENT
  Sex: Female
  Weight: 78.4723 kg

DRUGS (3)
  1. OLIVE OIL [Concomitant]
  2. RID MOUSSE [Suspect]
     Indication: HAIR DISORDER
     Dosage: 1 TREAMENT EVERY 7-10 DAYS. SAYS USUALLY TREATMENT WILL DO THE TRICK.
     Dates: start: 20110830, end: 20110913
  3. RID MOUSSE [Suspect]
     Indication: PRURITUS
     Dosage: 1 TREAMENT EVERY 7-10 DAYS. SAYS USUALLY TREATMENT WILL DO THE TRICK.
     Dates: start: 20110830, end: 20110913

REACTIONS (1)
  - DRUG INEFFECTIVE [None]
